FAERS Safety Report 15562277 (Version 2)
Quarter: 2019Q1

REPORT INFORMATION
  Report Type: Spontaneous
  Country: JP (occurrence: JP)
  Receive Date: 20181029
  Receipt Date: 20190128
  Transmission Date: 20190417
  Serious: Yes (Hospitalization)
  Sender: FDA-Public Use
  Company Number: JP-PFIZER INC-2018431442

PATIENT
  Age: 44 Year
  Sex: Female

DRUGS (2)
  1. CHAMPIX [Suspect]
     Active Substance: VARENICLINE TARTRATE
     Dosage: 2 MG, DAILY
     Dates: start: 2018
  2. CHAMPIX [Suspect]
     Active Substance: VARENICLINE TARTRATE
     Dosage: UNK
     Dates: start: 2018, end: 2018

REACTIONS (3)
  - Loss of consciousness [Unknown]
  - Nausea [Unknown]
  - Contusion [Unknown]

NARRATIVE: CASE EVENT DATE: 20181021
